FAERS Safety Report 9603057 (Version 1)
Quarter: 2013Q4

REPORT INFORMATION
  Report Type: Spontaneous
  Country: US (occurrence: US)
  Receive Date: 20131007
  Receipt Date: 20131007
  Transmission Date: 20140711
  Serious: Yes (Hospitalization)
  Sender: FDA-Public Use
  Company Number: US-BRISTOL-MYERS SQUIBB COMPANY-19457043

PATIENT
  Age: 78 Year
  Sex: Female
  Weight: 80.27 kg

DRUGS (1)
  1. BYETTA [Suspect]
     Indication: TYPE 2 DIABETES MELLITUS
     Dosage: 1944-1995-ONGOING
     Route: 058
     Dates: start: 1994

REACTIONS (1)
  - Cardiac failure congestive [Unknown]
